FAERS Safety Report 10398140 (Version 1)
Quarter: 2014Q1

REPORT INFORMATION
  Report Type: Spontaneous
  Country: US (occurrence: None)
  Receive Date: 20130815
  Receipt Date: 20130815
  Transmission Date: 20141002
  Serious: Yes (Hospitalization, Other)
  Sender: FDA-Public Use
  Company Number: ADR-2013-00498

PATIENT
  Age: 31 Year
  Sex: Male

DRUGS (2)
  1. BACLOFEN INTRATHECAL 2000 MCG/ML (CANGENE) [Suspect]
     Indication: MUSCLE SPASTICITY
  2. MORPHINE [Concomitant]

REACTIONS (3)
  - Drug withdrawal syndrome [None]
  - Hyperhidrosis [None]
  - Muscle spasms [None]
